FAERS Safety Report 5034635-2 (Version None)
Quarter: 2006Q2

REPORT INFORMATION
  Report Type: 
  Country: None (occurrence: None)
  Receive Date: 20060621
  Receipt Date: 20060605
  Transmission Date: 20061013
  Serious: Yes (Hospitalization, Disabling, Congenital Anomaly, Other)
  Sender: FDA-Public Use
  Company Number: PAR_0665_2006

PATIENT
  Age: 10 Day
  Sex: Male
  Weight: 2.65 kg

DRUGS (1)
  1. METHYLDOPA [Suspect]
     Dosage: VAR QDAY PO
     Route: 048

REACTIONS (7)
  - CONGENITAL CYTOMEGALOVIRUS INFECTION [None]
  - DEAFNESS NEUROSENSORY [None]
  - DILATATION VENTRICULAR [None]
  - DRUG EXPOSURE DURING PREGNANCY [None]
  - NEONATAL DISORDER [None]
  - PAROTITIS [None]
  - STAPHYLOCOCCAL INFECTION [None]
